FAERS Safety Report 17365258 (Version 1)
Quarter: 2020Q1

REPORT INFORMATION
  Report Type: Spontaneous
  Country: DE (occurrence: DE)
  Receive Date: 20200204
  Receipt Date: 20200204
  Transmission Date: 20200409
  Serious: Yes (Other)
  Sender: FDA-Public Use
  Company Number: DE-LUPIN PHARMACEUTICALS INC.-2020-00471

PATIENT
  Age: 6 Month
  Sex: Female

DRUGS (1)
  1. TESTOSTERONE GEL [Suspect]
     Active Substance: TESTOSTERONE
     Indication: PRODUCT USED FOR UNKNOWN INDICATION
     Dosage: UNK
     Route: 062

REACTIONS (5)
  - Precocious puberty [Unknown]
  - Skin hyperpigmentation [Unknown]
  - Growth accelerated [Unknown]
  - Accidental exposure to product [Unknown]
  - Pseudoprecocious puberty [Unknown]
